FAERS Safety Report 9393477 (Version 1)
Quarter: 2013Q3

REPORT INFORMATION
  Report Type: Spontaneous
  Country: None (occurrence: None)
  Receive Date: 20130705
  Receipt Date: 20130705
  Transmission Date: 20140515
  Serious: Yes (Hospitalization, Other)
  Sender: FDA-Public Use
  Company Number: ES-023342

PATIENT
  Age: 83 Year
  Sex: Female

DRUGS (5)
  1. LEUKERAN [Suspect]
     Dosage: EVERY 15 DAYS (26 MILLIGRAM), ORAL
     Route: 048
     Dates: start: 20100524
  2. UNSPECIFIED INGREDIENTS [Suspect]
     Dosage: EVERY 28 DAYS (1000 MILLIGRAM, 1), INTRAVENOUS
     Route: 042
     Dates: start: 20100524
  3. PREVENCOR [Suspect]
  4. OMEPRAZOLE [Suspect]
  5. LACIDIPINE [Suspect]

REACTIONS (2)
  - Respiratory tract infection [None]
  - Neutropenia [None]
